FAERS Safety Report 20769174 (Version 1)
Quarter: 2022Q2

REPORT INFORMATION
  Report Type: Spontaneous
  Country: CA (occurrence: CA)
  Receive Date: 20220429
  Receipt Date: 20220429
  Transmission Date: 20220721
  Serious: Yes (Hospitalization, Other)
  Sender: FDA-Public Use
  Company Number: CA-SLATE RUN PHARMACEUTICALS-22CA001059

PATIENT

DRUGS (8)
  1. VANCOMYCIN HYDROCHLORIDE [Suspect]
     Active Substance: VANCOMYCIN HYDROCHLORIDE
     Indication: Pneumonia staphylococcal
     Dosage: UNK
  2. NOREPINEPHRINE [Suspect]
     Active Substance: NOREPINEPHRINE
     Indication: Blood pressure management
     Dosage: UNK
  3. OSELTAMIVIR [Suspect]
     Active Substance: OSELTAMIVIR
     Indication: Influenza
     Dosage: UNK
  4. LEVOFLOXACIN [Concomitant]
     Active Substance: LEVOFLOXACIN
     Indication: Pneumonia
  5. UNSPECIFIED INGREDIENT [Concomitant]
     Active Substance: UNSPECIFIED INGREDIENT
     Indication: Sepsis
     Route: 042
  6. PIPERACILLIN AND TAZOBACTAM [Concomitant]
     Active Substance: PIPERACILLIN SODIUM\TAZOBACTAM SODIUM
     Indication: Sepsis
  7. COLCHICINE [Concomitant]
     Active Substance: COLCHICINE
     Indication: Myocarditis
  8. ASPIRIN [Concomitant]
     Active Substance: ASPIRIN
     Indication: Myocarditis
     Dosage: HIGH DOSE

REACTIONS (5)
  - Hypoxia [Recovering/Resolving]
  - Compartment syndrome [Unknown]
  - Renal failure [Recovered/Resolved]
  - Rhabdomyolysis [Unknown]
  - Oedema [Unknown]
